FAERS Safety Report 10024947 (Version 2)
Quarter: 2014Q1

REPORT INFORMATION
  Report Type: Spontaneous
  Country: JP (occurrence: JP)
  Receive Date: 20140320
  Receipt Date: 20140320
  Transmission Date: 20141002
  Serious: Yes (Hospitalization)
  Sender: FDA-Public Use
  Company Number: JP-CUBIST PHARMACEUTICAL, INC.-2014CBST000315

PATIENT
  Sex: 0

DRUGS (2)
  1. CUBICIN [Suspect]
     Indication: STAPHYLOCOCCAL SKIN INFECTION
     Dosage: 4 MG/KG, ONCE A DAY
     Route: 041
     Dates: start: 201402, end: 201402
  2. UNSPECIFIED ANTIBACTERIAL [Suspect]
     Indication: STAPHYLOCOCCAL SKIN INFECTION
     Dosage: UNK UNK, UNK
     Route: 065

REACTIONS (2)
  - Acidosis [Unknown]
  - Blood creatine phosphokinase increased [Unknown]
